FAERS Safety Report 7788992-4 (Version None)
Quarter: 2011Q3

REPORT INFORMATION
  Report Type: 
  Country: None (occurrence: None)
  Receive Date: 20110930
  Receipt Date: 20110926
  Transmission Date: 20111222
  Serious: Yes (Death, Hospitalization, Other)
  Sender: FDA-Public Use
  Company Number: PHEH2009US16957

PATIENT
  Sex: Female

DRUGS (31)
  1. SOLU-MEDROL [Concomitant]
     Route: 042
  2. PULMICORT [Concomitant]
  3. METHADONE HCL [Concomitant]
     Dosage: 40 MG, BID
     Route: 048
  4. DEXAMETHASONE [Concomitant]
     Route: 048
  5. PROTONIX [Concomitant]
     Dosage: 40 MG, QD
     Route: 042
  6. ENOXAPARIN [Concomitant]
     Dosage: 0.4 ML, DAILY
     Route: 058
  7. IPRATROPIUM BROMIDE [Concomitant]
  8. ZOLPIDEM [Concomitant]
     Dosage: 10 MG, QHS
     Route: 048
  9. MIRALAX [Concomitant]
     Dosage: 17 G, DAILY
     Route: 048
  10. GABAPENTIN [Concomitant]
     Dosage: UNK
     Route: 048
  11. ZOMETA [Suspect]
     Dosage: 4 MG, UNK
     Route: 042
  12. DIFLUCAN [Concomitant]
     Dosage: 100 MG, QD
     Route: 048
  13. DECADRON [Concomitant]
  14. LORAZEPAM [Concomitant]
     Dosage: 1 MG, QHS
     Route: 048
  15. METHYLPREDNISOLONE [Concomitant]
  16. HYTRIN [Concomitant]
     Dosage: 1 MG, Q12H
     Route: 048
  17. KYTRIL [Concomitant]
     Dosage: 1 MG, Q12H
  18. SENOKOT [Concomitant]
  19. PEPCID [Concomitant]
     Dosage: 20 MG, DAILY
     Route: 048
  20. OXYCONTIN [Concomitant]
     Dosage: 480 MG, TID
     Route: 048
  21. SENNA-S (DOCUSATE SODIUM/SENNA ALEXANDRINA) [Concomitant]
  22. DILAUDID [Concomitant]
     Route: 048
  23. ZEGERID [Concomitant]
  24. POTASSIUM CHLORIDE [Concomitant]
     Dosage: 10 MEQ, DAILY
     Route: 048
  25. BENZONATATE [Concomitant]
     Dosage: 20 MG, DAILY
  26. CHLORHEXIDINE GLUCONATE [Concomitant]
     Route: 061
  27. DULCOLAX [Concomitant]
     Dosage: 10 MG, QHS
     Route: 048
  28. CELEBREX [Concomitant]
     Dosage: 200 MG, DAILY
     Route: 048
  29. IBUPROFEN (ADVIL) [Concomitant]
  30. PIPERACILLIN AND TAZOBACTAM [Concomitant]
  31. AMBIEN [Concomitant]
     Dosage: 10 MG, QHS
     Route: 048

REACTIONS (71)
  - EMBOLISM VENOUS [None]
  - GASTROOESOPHAGEAL REFLUX DISEASE [None]
  - TOBACCO ABUSE [None]
  - NAUSEA [None]
  - MUSCULOSKELETAL PAIN [None]
  - OSTEOSCLEROSIS [None]
  - METASTASES TO ADRENALS [None]
  - PALMAR-PLANTAR ERYTHRODYSAESTHESIA SYNDROME [None]
  - HEPATIC STEATOSIS [None]
  - NEOPLASM MALIGNANT [None]
  - PLEURAL EFFUSION [None]
  - ATELECTASIS [None]
  - ANAEMIA OF MALIGNANT DISEASE [None]
  - SINUS TACHYCARDIA [None]
  - ILEUS [None]
  - HYPOAESTHESIA [None]
  - PERIPHERAL SENSORY NEUROPATHY [None]
  - CEREBELLAR INFARCTION [None]
  - GENERAL PHYSICAL HEALTH DETERIORATION [None]
  - ANHEDONIA [None]
  - ANXIETY [None]
  - PNEUMOTHORAX [None]
  - HEADACHE [None]
  - PYREXIA [None]
  - BRONCHITIS [None]
  - ABDOMINAL PAIN [None]
  - ABDOMINAL DISTENSION [None]
  - ASTHENIA [None]
  - ECZEMA [None]
  - METASTASES TO LIVER [None]
  - BONE PAIN [None]
  - DYSPEPSIA [None]
  - DEATH [None]
  - OSTEONECROSIS OF JAW [None]
  - HYPERTHERMIA [None]
  - DRUG HYPERSENSITIVITY [None]
  - METASTASES TO BONE [None]
  - BACK PAIN [None]
  - OBESITY [None]
  - RESPIRATORY DISTRESS [None]
  - PAIN [None]
  - PNEUMONIA [None]
  - DYSPNOEA [None]
  - METASTASES TO PLEURA [None]
  - MYOPATHY [None]
  - CONSTIPATION [None]
  - HYPOKALAEMIA [None]
  - PARAESTHESIA [None]
  - CENTRAL NERVOUS SYSTEM LESION [None]
  - DEEP VEIN THROMBOSIS [None]
  - LUNG NEOPLASM MALIGNANT [None]
  - LEFT VENTRICULAR HYPERTROPHY [None]
  - HYPONATRAEMIA [None]
  - WHEEZING [None]
  - BREAST PAIN [None]
  - THROMBOCYTOPENIA [None]
  - MICTURITION FREQUENCY DECREASED [None]
  - PARAPSORIASIS [None]
  - GASTRITIS [None]
  - METASTASES TO LYMPH NODES [None]
  - ACUTE RESPIRATORY FAILURE [None]
  - OEDEMA PERIPHERAL [None]
  - MUSCULOSKELETAL CHEST PAIN [None]
  - BONE NEOPLASM MALIGNANT [None]
  - PRODUCTIVE COUGH [None]
  - VISION BLURRED [None]
  - HIP FRACTURE [None]
  - DECREASED APPETITE [None]
  - FATIGUE [None]
  - HYPERTRIGLYCERIDAEMIA [None]
  - COLON CANCER [None]
